FAERS Safety Report 9699033 (Version 1)
Quarter: 2013Q4

REPORT INFORMATION
  Report Type: Spontaneous
  Country: US (occurrence: None)
  Receive Date: 20131118
  Receipt Date: 20131118
  Transmission Date: 20140711
  Serious: Yes (Other)
  Sender: FDA-Public Use
  Company Number: SYM-2013-12454

PATIENT
  Age: 41 Year
  Sex: Female

DRUGS (1)
  1. ACNE FREE KIT [Suspect]
     Indication: ACNE
     Route: 061
     Dates: start: 20131030, end: 20131031

REACTIONS (5)
  - Eye swelling [None]
  - Pruritus [None]
  - Erythema [None]
  - Dermatitis [None]
  - Swelling face [None]
